FAERS Safety Report 12529921 (Version 2)
Quarter: 2020Q2

REPORT INFORMATION
  Report Type: Spontaneous
  Country: IL (occurrence: IL)
  Receive Date: 20160706
  Receipt Date: 20200627
  Transmission Date: 20200713
  Serious: Yes (Death, Life-Threatening, Hospitalization)
  Sender: FDA-Public Use
  Company Number: IL-AXELLIA-000955

PATIENT
  Age: 69 Year
  Sex: Male

DRUGS (6)
  1. CIPROFLOXACIN. [Suspect]
     Active Substance: CIPROFLOXACIN
     Indication: STAPHYLOCOCCAL INFECTION
  2. LINEZOLID. [Suspect]
     Active Substance: LINEZOLID
     Indication: STAPHYLOCOCCAL INFECTION
  3. DOXYCYCLINE. [Suspect]
     Active Substance: DOXYCYCLINE
     Indication: STAPHYLOCOCCAL INFECTION
  4. CEFTAROLINE [Suspect]
     Active Substance: CEFTAROLINE
     Indication: MENINGITIS
  5. PIPERACILLIN/TAZOBACTAM [Suspect]
     Active Substance: PIPERACILLIN SODIUM\TAZOBACTAM SODIUM
     Indication: SEPSIS
  6. VANCOMYCIN [Suspect]
     Active Substance: VANCOMYCIN
     Indication: STAPHYLOCOCCAL INFECTION

REACTIONS (7)
  - Septic shock [Fatal]
  - Toxic epidermal necrolysis [Fatal]
  - Staphylococcal bacteraemia [Fatal]
  - Tubulointerstitial nephritis [Fatal]
  - Drug reaction with eosinophilia and systemic symptoms [Fatal]
  - Stevens-Johnson syndrome [Fatal]
  - Acute kidney injury [Fatal]
